FAERS Safety Report 12603877 (Version 1)
Quarter: 2016Q3

REPORT INFORMATION
  Report Type: Spontaneous
  Country: DE (occurrence: DE)
  Receive Date: 20160728
  Receipt Date: 20160728
  Transmission Date: 20161109
  Serious: Yes (Hospitalization)
  Sender: FDA-Public Use
  Company Number: DE-ABBVIE-16K-062-1683374-00

PATIENT
  Age: 19 Year
  Sex: Female
  Weight: 50 kg

DRUGS (3)
  1. HUMIRA [Suspect]
     Active Substance: ADALIMUMAB
     Indication: CROHN^S DISEASE
     Route: 058
     Dates: start: 201403
  2. BUDENOFALK [Concomitant]
     Active Substance: BUDESONIDE
     Indication: PRODUCT USED FOR UNKNOWN INDICATION
  3. AZATHIOPRIN [Concomitant]
     Active Substance: AZATHIOPRINE
     Indication: CROHN^S DISEASE

REACTIONS (6)
  - Hypercholesterolaemia [Unknown]
  - Limb discomfort [Unknown]
  - Embolic cerebral infarction [Recovering/Resolving]
  - Hemiparesis [Recovering/Resolving]
  - Aphasia [Recovering/Resolving]
  - Cerebral ischaemia [Recovering/Resolving]

NARRATIVE: CASE EVENT DATE: 201605
